FAERS Safety Report 12834189 (Version 1)
Quarter: 2016Q4

REPORT INFORMATION
  Report Type: Spontaneous
  Country: US (occurrence: US)
  Receive Date: 20161010
  Receipt Date: 20161010
  Transmission Date: 20170207
  Serious: No
  Sender: FDA-Public Use
  Company Number: US-MEDA-2016100006

PATIENT
  Age: 67 Year
  Sex: Male
  Weight: 59 kg

DRUGS (2)
  1. MUSE [Suspect]
     Active Substance: ALPROSTADIL
     Indication: ERECTILE DYSFUNCTION
     Route: 066
     Dates: start: 20161001
  2. MOMETASONE FUROATE MONOHYDRATE. [Suspect]
     Active Substance: MOMETASONE FUROATE MONOHYDRATE

REACTIONS (5)
  - Drug ineffective [Unknown]
  - Wrong technique in product usage process [Recovered/Resolved]
  - Drug interaction [Unknown]
  - Application site coldness [Recovered/Resolved]
  - Feeling cold [Recovered/Resolved]

NARRATIVE: CASE EVENT DATE: 20161001
